APPROVED DRUG PRODUCT: LANSOPRAZOLE
Active Ingredient: LANSOPRAZOLE
Strength: 30MG
Dosage Form/Route: CAPSULE, DELAYED REL PELLETS;ORAL
Application: A208671 | Product #002
Applicant: MACLEODS PHARMACEUTICALS LTD
Approved: Nov 4, 2024 | RLD: No | RS: No | Type: DISCN